FAERS Safety Report 21208209 (Version 1)
Quarter: 2022Q3

REPORT INFORMATION
  Report Type: Spontaneous
  Country: CN (occurrence: CN)
  Receive Date: 20220812
  Receipt Date: 20220812
  Transmission Date: 20221027
  Serious: Yes (Other)
  Sender: FDA-Public Use
  Company Number: CN-BAYER-2022A109189

PATIENT
  Age: 67 Year
  Sex: Male
  Weight: 61 kg

DRUGS (2)
  1. NEXAVAR [Suspect]
     Active Substance: SORAFENIB
     Indication: Renal cancer
     Dosage: 0.4 G, BID
     Route: 048
     Dates: start: 20220520, end: 20220721
  2. NEXAVAR [Suspect]
     Active Substance: SORAFENIB
     Indication: Targeted cancer therapy

REACTIONS (2)
  - Leukoplakia oral [Recovering/Resolving]
  - Mouth ulceration [Recovering/Resolving]

NARRATIVE: CASE EVENT DATE: 20220721
